FAERS Safety Report 4629223-3 (Version None)
Quarter: 2005Q2

REPORT INFORMATION
  Report Type: 
  Country: None (occurrence: None)
  Receive Date: 20050405
  Receipt Date: 20050322
  Transmission Date: 20051028
  Serious: Yes (Hospitalization)
  Sender: FDA-Public Use
  Company Number: 2005BI003995

PATIENT
  Age: 71 Year
  Sex: Female

DRUGS (5)
  1. AVONEX [Suspect]
     Indication: MULTIPLE SCLEROSIS
     Dosage: 30 UG;QW;IM
     Route: 030
     Dates: start: 19970101
  2. AVONEX [Suspect]
     Indication: MULTIPLE SCLEROSIS
     Dosage: 30 UG;QW;IM
     Route: 030
  3. IMURAN [Concomitant]
  4. BUMEX [Concomitant]
  5. DIAZEPAM [Concomitant]

REACTIONS (4)
  - ABASIA [None]
  - ASTHENIA [None]
  - GASTRIC PERFORATION [None]
  - HERNIA [None]
